FAERS Safety Report 6531874-6 (Version None)
Quarter: 2010Q1

REPORT INFORMATION
  Report Type: 
  Country: None (occurrence: None)
  Receive Date: 20100108
  Receipt Date: 20091230
  Transmission Date: 20100710
  Serious: Yes (Hospitalization)
  Sender: FDA-Public Use
  Company Number: US-ASTRAZENECA-2009SE34026

PATIENT
  Age: 58 Year
  Sex: Female

DRUGS (1)
  1. SEROQUEL XR [Suspect]
     Dosage: FOUR TIMES A DAY
     Route: 048
     Dates: start: 20060701, end: 20060801

REACTIONS (7)
  - CEREBROVASCULAR ACCIDENT [None]
  - COMA [None]
  - HALLUCINATION [None]
  - KIDNEY INFECTION [None]
  - MOVEMENT DISORDER [None]
  - PAIN [None]
  - WEIGHT DECREASED [None]
